FAERS Safety Report 15882874 (Version 2)
Quarter: 2020Q4

REPORT INFORMATION
  Report Type: Spontaneous
  Country: GB (occurrence: GB)
  Receive Date: 20190129
  Receipt Date: 20201009
  Transmission Date: 20210113
  Serious: Yes (Life-Threatening, Other)
  Sender: FDA-Public Use
  Company Number: GB-ACCORD-102957

PATIENT
  Sex: Female

DRUGS (4)
  1. AZATHIOPRINE. [Concomitant]
     Active Substance: AZATHIOPRINE
     Indication: AUTOIMMUNE HEPATITIS
  2. MYCOPHENOLIC ACID. [Suspect]
     Active Substance: MYCOPHENOLIC ACID
     Indication: AUTOIMMUNE HEPATITIS
  3. ALLOPURINOL. [Suspect]
     Active Substance: ALLOPURINOL
     Indication: PRODUCT USED FOR UNKNOWN INDICATION
  4. PREDNISOLONE. [Suspect]
     Active Substance: PREDNISOLONE
     Indication: AUTOIMMUNE HEPATITIS
     Dosage: ALSO 15 MG
     Route: 048

REACTIONS (6)
  - Off label use [Unknown]
  - Cushing^s syndrome [Unknown]
  - Nausea [Unknown]
  - Abdominal pain [Unknown]
  - Drug ineffective [Unknown]
  - Hyperglycaemia [Unknown]
